FAERS Safety Report 5895149-0 (Version None)
Quarter: 2008Q3

REPORT INFORMATION
  Report Type: 
  Country: None (occurrence: None)
  Receive Date: 20080924
  Receipt Date: 20080911
  Transmission Date: 20090109
  Serious: Yes (Hospitalization)
  Sender: FDA-Public Use
  Company Number: FR-PFIZER INC-2008077140

PATIENT
  Age: 59 Year
  Sex: Male

DRUGS (7)
  1. TAHOR [Suspect]
     Route: 048
     Dates: end: 20080718
  2. CELIPROLOL HYDROCHLORIDE [Suspect]
     Route: 048
     Dates: end: 20080718
  3. OMEPRAZOLE [Suspect]
     Route: 048
     Dates: end: 20080718
  4. LERCAN [Suspect]
     Route: 048
     Dates: end: 20080718
  5. XATRAL [Suspect]
     Dosage: TEXT:1 U
     Route: 048
     Dates: end: 20080718
  6. DAONIL [Suspect]
     Route: 048
     Dates: end: 20080718
  7. FLUDEX [Suspect]
     Route: 048
     Dates: end: 20080718

REACTIONS (4)
  - CHOLESTASIS [None]
  - CHOLESTATIC LIVER INJURY [None]
  - CYTOLYTIC HEPATITIS [None]
  - RHABDOMYOLYSIS [None]
